FAERS Safety Report 8192003-9 (Version None)
Quarter: 2012Q1

REPORT INFORMATION
  Report Type: 
  Country: None (occurrence: None)
  Receive Date: 20120307
  Receipt Date: 20120302
  Transmission Date: 20120608
  Serious: Yes (Death, Hospitalization)
  Sender: FDA-Public Use
  Company Number: PHHY2012JP014985

PATIENT
  Age: 57 Year
  Sex: Female

DRUGS (2)
  1. TPN [Concomitant]
  2. OCTREOTIDE ACETATE [Suspect]
     Indication: INTESTINAL OBSTRUCTION
     Route: 058

REACTIONS (4)
  - GENERAL PHYSICAL HEALTH DETERIORATION [None]
  - INTESTINAL OBSTRUCTION [None]
  - MALIGNANT ASCITES [None]
  - DEATH [None]
